FAERS Safety Report 25904410 (Version 1)
Quarter: 2025Q4

REPORT INFORMATION
  Report Type: Spontaneous
  Country: EU (occurrence: EU)
  Receive Date: 20251010
  Receipt Date: 20251010
  Transmission Date: 20260117
  Serious: Yes (Other)
  Sender: AUROBINDO
  Company Number: EU-BRISTOL-MYERS SQUIBB COMPANY-2025-132303

PATIENT
  Age: 85 Year
  Sex: Female

DRUGS (2)
  1. PANTOPRAZOLE [Suspect]
     Active Substance: PANTOPRAZOLE
     Indication: Bladder cancer stage III
     Dosage: UNK
     Route: 065
  2. OPDIVO [Suspect]
     Active Substance: NIVOLUMAB
     Indication: Bladder cancer stage III
     Dosage: 240 MILLIGRAM, UNK
     Route: 065
     Dates: start: 20250430, end: 20250603

REACTIONS (1)
  - Immune-mediated nephritis [Unknown]
